FAERS Safety Report 24057481 (Version 4)
Quarter: 2024Q3

REPORT INFORMATION
  Report Type: Spontaneous
  Country: GB (occurrence: GB)
  Receive Date: 20240706
  Receipt Date: 20240910
  Transmission Date: 20241017
  Serious: Yes (Other)
  Sender: ABBVIE
  Company Number: GB-ABBVIE-5827674

PATIENT
  Age: 42 Year
  Sex: Male
  Weight: 82 kg

DRUGS (8)
  1. UPADACITINIB [Suspect]
     Active Substance: UPADACITINIB
     Indication: Crohn^s disease
     Dosage: FORM STRENGTH: 15 MG, STOP DATE 2024
     Route: 048
     Dates: start: 20240524
  2. UPADACITINIB [Suspect]
     Active Substance: UPADACITINIB
     Indication: Crohn^s disease
     Dosage: FORM STRENGTH: 15 MG
     Route: 048
     Dates: start: 20240807
  3. UPADACITINIB [Suspect]
     Active Substance: UPADACITINIB
     Indication: Crohn^s disease
     Dosage: DOSE 70MG, FORM 15MG X2 + 45MG X1
     Route: 048
     Dates: start: 2024, end: 2024
  4. UPADACITINIB [Suspect]
     Active Substance: UPADACITINIB
     Indication: Crohn^s disease
     Dosage: DOSE 135MG, FORM 45MG X3
     Route: 048
     Dates: start: 2024, end: 20240702
  5. NORTRIPTYLINE [Concomitant]
     Active Substance: NORTRIPTYLINE
     Indication: Product used for unknown indication
  6. BENZYDAMINE [Concomitant]
     Active Substance: BENZYDAMINE
     Indication: Product used for unknown indication
  7. BENZYDAMINE [Concomitant]
     Active Substance: BENZYDAMINE
     Indication: Product used for unknown indication
  8. FUSIDIC ACID [Concomitant]
     Active Substance: FUSIDIC ACID
     Indication: Product used for unknown indication

REACTIONS (14)
  - Blood creatinine increased [Not Recovered/Not Resolved]
  - Somnolence [Recovered/Resolved]
  - Pyrexia [Recovered/Resolved]
  - Renal impairment [Unknown]
  - Blood alkaline phosphatase abnormal [Unknown]
  - Mouth ulceration [Recovered/Resolved]
  - Headache [Recovered/Resolved]
  - Glomerular filtration rate decreased [Recovering/Resolving]
  - Vomiting [Unknown]
  - Oral herpes [Unknown]
  - Vomiting [Unknown]
  - Overdose [Unknown]
  - Insomnia [Recovered/Resolved]
  - Fatigue [Recovered/Resolved]

NARRATIVE: CASE EVENT DATE: 20240101
